FAERS Safety Report 9183355 (Version 1)
Quarter: 2013Q1

REPORT INFORMATION
  Report Type: Spontaneous
  Country: US (occurrence: US)
  Receive Date: 20130322
  Receipt Date: 20130322
  Transmission Date: 20140127
  Serious: No
  Sender: FDA-Public Use
  Company Number: US-PFIZER INC-2013094627

PATIENT
  Age: 66 Year
  Sex: Female

DRUGS (4)
  1. LYRICA [Suspect]
     Indication: DIABETIC NEUROPATHY
     Dosage: UNK, 2X/DAY
     Dates: start: 2013
  2. ZANAFLEX [Suspect]
     Indication: BACK INJURY
     Dosage: UNK
     Dates: start: 1999
  3. ATIVAN [Concomitant]
     Indication: HYPOTENSION
     Dosage: 50 MG, 1X/DAY
  4. HYDROCODONE [Concomitant]
     Indication: POST LAMINECTOMY SYNDROME
     Dosage: UNK, 4X/DAY

REACTIONS (6)
  - Alopecia [Not Recovered/Not Resolved]
  - Aggression [Recovering/Resolving]
  - Depression [Unknown]
  - Feeling abnormal [Unknown]
  - Somnolence [Unknown]
  - Intentional drug misuse [Unknown]
